FAERS Safety Report 5653421-3 (Version None)
Quarter: 2008Q1

REPORT INFORMATION
  Report Type: 
  Country: None (occurrence: None)
  Receive Date: 20080306
  Receipt Date: 20080227
  Transmission Date: 20080703
  Serious: Yes (Other)
  Sender: FDA-Public Use
  Company Number: B0493414A

PATIENT
  Age: 51 Year
  Sex: Male
  Weight: 70 kg

DRUGS (3)
  1. REQUIP [Suspect]
     Indication: PARKINSON'S DISEASE
     Dosage: 20MG PER DAY
     Route: 065
     Dates: end: 20070101
  2. MODOPAR [Concomitant]
     Indication: PARKINSON'S DISEASE
     Dosage: 125MG SEE DOSAGE TEXT
     Route: 048
     Dates: start: 19990101
  3. COMTAN [Concomitant]
     Route: 048

REACTIONS (3)
  - AGGRESSION [None]
  - PATHOLOGICAL GAMBLING [None]
  - THEFT [None]
